FAERS Safety Report 21382648 (Version 4)
Quarter: 2023Q1

REPORT INFORMATION
  Report Type: Spontaneous
  Country: BR (occurrence: BR)
  Receive Date: 20220927
  Receipt Date: 20230119
  Transmission Date: 20230417
  Serious: Yes (Death, Other)
  Sender: FDA-Public Use
  Company Number: BR-BoehringerIngelheim-2022-BI-192843

PATIENT
  Age: 74 Year
  Sex: Male
  Weight: 80 kg

DRUGS (9)
  1. ALTEPLASE [Suspect]
     Active Substance: ALTEPLASE
     Indication: Cerebrovascular accident
     Dosage: 10MG (3 UNITS) AND 50MG (1 UNIT)?LAST DOSE ADMINISTERED ON 22/JUL/2022
     Route: 042
     Dates: start: 20220722, end: 20220722
  2. ONDANSETRON [Concomitant]
     Active Substance: ONDANSETRON
     Indication: Drug therapy
     Dosage: AT 12H, 1 AMPOULE
  3. OMEPRAZOLE [Concomitant]
     Active Substance: OMEPRAZOLE
     Indication: Drug therapy
     Dosage: AT 12H, 1 AMPOULE
  4. SALINE [Concomitant]
     Active Substance: SODIUM CHLORIDE
     Indication: Drug therapy
     Dosage: 0.5% AT 12H
  5. ASPIRIN [Concomitant]
     Active Substance: ASPIRIN
     Indication: Product used for unknown indication
     Dosage: CONTINUOUS USE
  6. CLOPIDOGREL [Concomitant]
     Active Substance: CLOPIDOGREL BISULFATE
     Indication: Product used for unknown indication
     Dosage: CONTINUOUS USE
  7. GLIFAGE [Concomitant]
     Active Substance: METFORMIN HYDROCHLORIDE
     Indication: Product used for unknown indication
     Dosage: CONTINUOUS USE
  8. CILOSTAZOL [Concomitant]
     Active Substance: CILOSTAZOL
     Indication: Product used for unknown indication
     Dosage: CONTINUOUS USE
  9. ROSUVASTATIN [Concomitant]
     Active Substance: ROSUVASTATIN
     Indication: Product used for unknown indication
     Dosage: CONTINUOUS USE

REACTIONS (5)
  - Ischaemic stroke [Fatal]
  - Haemorrhagic transformation stroke [Not Recovered/Not Resolved]
  - Intracranial pressure increased [Not Recovered/Not Resolved]
  - Altered state of consciousness [Not Recovered/Not Resolved]
  - Vomiting [Recovered/Resolved]

NARRATIVE: CASE EVENT DATE: 20220722
